FAERS Safety Report 20574316 (Version 1)
Quarter: 2022Q1

REPORT INFORMATION
  Report Type: Spontaneous
  Country: US (occurrence: US)
  Receive Date: 20220309
  Receipt Date: 20220309
  Transmission Date: 20220423
  Serious: No
  Sender: FDA-Public Use
  Company Number: US-BRISTOL-MYERS SQUIBB COMPANY-BMS-2022-030082

PATIENT
  Sex: Male

DRUGS (4)
  1. KENALOG-40 [Suspect]
     Active Substance: TRIAMCINOLONE ACETONIDE
     Indication: Plantar fasciitis
     Dosage: 4
     Route: 065
     Dates: start: 20220125
  2. LIDOCAINE [Concomitant]
     Active Substance: LIDOCAINE
     Indication: Adverse event
     Dosage: UNK
     Route: 065
  3. MARCAINE [Concomitant]
     Active Substance: BUPIVACAINE HYDROCHLORIDE
     Indication: Adverse event
     Dosage: 1 MILLILITER
     Route: 065
  4. DEXAMETHASONE SODIUM PHOSPHATE [Concomitant]
     Active Substance: DEXAMETHASONE SODIUM PHOSPHATE
     Indication: Adverse event
     Dosage: 0.5
     Route: 065

REACTIONS (3)
  - Pain [Unknown]
  - Swelling [Unknown]
  - Gait disturbance [Unknown]
